FAERS Safety Report 18040581 (Version 4)
Quarter: 2023Q1

REPORT INFORMATION
  Report Type: Spontaneous
  Country: US (occurrence: None)
  Receive Date: 20200717
  Receipt Date: 20230111
  Transmission Date: 20230418
  Serious: Yes (Other)
  Sender: FDA-Public Use
  Company Number: US-ROCHE-2578935

PATIENT
  Sex: Male

DRUGS (5)
  1. HEMLIBRA [Suspect]
     Active Substance: EMICIZUMAB-KXWH
     Indication: Factor VIII deficiency
     Dosage: 60 MG/0.4ML
     Route: 058
     Dates: start: 20200109
  2. HEMLIBRA [Suspect]
     Active Substance: EMICIZUMAB-KXWH
     Dosage: DOSAGE STRENGTH: 30 MG/ML
     Route: 058
     Dates: start: 20200109
  3. HEMLIBRA [Suspect]
     Active Substance: EMICIZUMAB-KXWH
     Dosage: DOSAGE STRENGTH: 60 MG/0.4ML
     Route: 058
     Dates: start: 20200109
  4. HEMLIBRA [Suspect]
     Active Substance: EMICIZUMAB-KXWH
     Route: 058
     Dates: start: 202105
  5. HEMLIBRA [Suspect]
     Active Substance: EMICIZUMAB-KXWH
     Route: 057
     Dates: start: 20210916

REACTIONS (2)
  - Haemorrhage [Unknown]
  - Haemarthrosis [Unknown]
